FAERS Safety Report 12328982 (Version 1)
Quarter: 2016Q2

REPORT INFORMATION
  Report Type: Spontaneous
  Country: US (occurrence: US)
  Receive Date: 20160503
  Receipt Date: 20160503
  Transmission Date: 20160815
  Serious: Yes (Hospitalization)
  Sender: FDA-Public Use
  Company Number: US-AMGEN-USASP2016055055

PATIENT
  Age: 70 Year
  Sex: Male
  Weight: 68.39 kg

DRUGS (1)
  1. PROCRIT [Suspect]
     Active Substance: ERYTHROPOIETIN
     Indication: NEPHROGENIC ANAEMIA
     Dosage: 20000 UNIT, QWK
     Route: 058

REACTIONS (6)
  - Blood urine present [Recovered/Resolved]
  - Urinary bladder rupture [Recovered/Resolved]
  - Decreased appetite [Not Recovered/Not Resolved]
  - Weight decreased [Not Recovered/Not Resolved]
  - Haemoglobin abnormal [Unknown]
  - Fat tissue increased [Recovered/Resolved]

NARRATIVE: CASE EVENT DATE: 201510
